FAERS Safety Report 17978534 (Version 3)
Quarter: 2021Q1

REPORT INFORMATION
  Report Type: Spontaneous
  Country: US (occurrence: US)
  Receive Date: 20200703
  Receipt Date: 20210308
  Transmission Date: 20210419
  Serious: No
  Sender: FDA-Public Use
  Company Number: US-ASTRAZENECA-2020SE80232

PATIENT
  Sex: Male
  Weight: 95.3 kg

DRUGS (2)
  1. BYDUREON BCISE [Suspect]
     Active Substance: EXENATIDE
     Indication: TYPE 2 DIABETES MELLITUS
     Route: 058
  2. GLIBARIDE [Concomitant]
     Indication: TYPE 2 DIABETES MELLITUS
     Route: 065

REACTIONS (9)
  - Injection site nodule [Unknown]
  - Incorrect dose administered by device [Unknown]
  - Device leakage [Unknown]
  - Device issue [Unknown]
  - Weight increased [Unknown]
  - Subcutaneous drug absorption impaired [Unknown]
  - Intentional product misuse [Unknown]
  - Blood glucose increased [Unknown]
  - Injection site pain [Unknown]
